FAERS Safety Report 10960449 (Version 2)
Quarter: 2015Q2

REPORT INFORMATION
  Report Type: Spontaneous
  Country: JP (occurrence: JP)
  Receive Date: 20150327
  Receipt Date: 20150408
  Transmission Date: 20150821
  Serious: Yes (Death, Hospitalization, Other)
  Sender: FDA-Public Use
  Company Number: JP-BAYER-2015-061324

PATIENT
  Age: 72 Year
  Sex: Male

DRUGS (1)
  1. NEXAVAR [Suspect]
     Active Substance: SORAFENIB
     Indication: HEPATOCELLULAR CARCINOMA
     Dosage: 400 MG, QD
     Route: 048
     Dates: start: 20110902, end: 201403

REACTIONS (10)
  - Metabolic acidosis [Fatal]
  - Pyrexia [None]
  - Gas gangrene [Fatal]
  - Yellow skin [Fatal]
  - Disseminated intravascular coagulation [Fatal]
  - Abdominal pain upper [None]
  - Hepatorenal failure [Fatal]
  - Inflammation [Fatal]
  - Malaise [None]
  - Altered state of consciousness [None]

NARRATIVE: CASE EVENT DATE: 20140419
